FAERS Safety Report 12003766 (Version 1)
Quarter: 2016Q1

REPORT INFORMATION
  Report Type: Spontaneous
  Country: US (occurrence: US)
  Receive Date: 20160204
  Receipt Date: 20160204
  Transmission Date: 20160526
  Serious: No
  Sender: FDA-Public Use
  Company Number: US-ABBVIE-15K-163-1423225-00

PATIENT
  Age: 20 Year
  Sex: Female
  Weight: 47.67 kg

DRUGS (3)
  1. HUMIRA [Suspect]
     Active Substance: ADALIMUMAB
     Indication: CROHN^S DISEASE
     Route: 058
     Dates: start: 201501
  2. SULFASALAZINE. [Concomitant]
     Active Substance: SULFASALAZINE
     Indication: CROHN^S DISEASE
  3. PREDNISONE. [Concomitant]
     Active Substance: PREDNISONE
     Indication: CROHN^S DISEASE

REACTIONS (4)
  - Injection site pain [Not Recovered/Not Resolved]
  - Incorrect dose administered [Not Recovered/Not Resolved]
  - Device issue [Unknown]
  - Injection site urticaria [Recovered/Resolved]

NARRATIVE: CASE EVENT DATE: 201506
